FAERS Safety Report 11486556 (Version 1)
Quarter: 2015Q3

REPORT INFORMATION
  Report Type: Spontaneous
  Country: US (occurrence: US)
  Receive Date: 20150910
  Receipt Date: 20150910
  Transmission Date: 20151125
  Serious: No
  Sender: FDA-Public Use
  Company Number: US-PFIZER INC-2015288249

PATIENT
  Age: 68 Year
  Sex: Female
  Weight: 49 kg

DRUGS (4)
  1. SYNTHROID [Concomitant]
     Active Substance: LEVOTHYROXINE SODIUM
     Dosage: SEVEN DAYS A WEEK
     Route: 048
  2. RELPAX [Suspect]
     Active Substance: ELETRIPTAN HYDROBROMIDE
     Indication: MIGRAINE
     Dosage: 40 MG, SINGLE
     Route: 048
     Dates: end: 2010
  3. COQ10 [Suspect]
     Active Substance: UBIDECARENONE
     Indication: MIGRAINE
     Dosage: 100 MG, DAILY
     Route: 048
     Dates: start: 2010
  4. SYNTHROID [Concomitant]
     Active Substance: LEVOTHYROXINE SODIUM
     Dosage: FIVE DAYS A WEEK
     Route: 048

REACTIONS (2)
  - Drug ineffective [Unknown]
  - Oropharyngeal discomfort [Unknown]
